FAERS Safety Report 19321889 (Version 2)
Quarter: 2022Q4

REPORT INFORMATION
  Report Type: Spontaneous
  Country: US (occurrence: US)
  Receive Date: 20210528
  Receipt Date: 20221012
  Transmission Date: 20230113
  Serious: No
  Sender: FDA-Public Use
  Company Number: US-JNJFOC-20210548123

PATIENT
  Age: 1 Decade
  Sex: Male

DRUGS (3)
  1. RISPERDAL [Suspect]
     Active Substance: RISPERIDONE
     Indication: Product used for unknown indication
     Dosage: IN VARYING DOSES OF 0.25 MG TO 0.5 MG IN VARYING FREQUENCIES OF ONCE DAILY TO TWICE DAILY
     Route: 048
     Dates: start: 20101023, end: 2014
  2. RISPERIDONE [Suspect]
     Active Substance: RISPERIDONE
     Indication: Product used for unknown indication
     Dosage: IN VARYING DOSES OF 0.25 MG TO 0.5 MG IN VARYING FREQUENCIES OF ONCE DAILY TO TWICE DAILY
     Route: 065
  3. RISPERIDONE [Suspect]
     Active Substance: RISPERIDONE
     Indication: Product used for unknown indication
     Dosage: IN VARYING DOSES OF 0.25 MG TO 0.5 MG IN VARYING FREQUENCIES OF ONCE DAILY TO TWICE DAILY
     Route: 065

REACTIONS (5)
  - Emotional disorder [Unknown]
  - Overweight [Unknown]
  - Akathisia [Unknown]
  - Gynaecomastia [Unknown]
  - Sedation complication [Unknown]

NARRATIVE: CASE EVENT DATE: 20120101
